FAERS Safety Report 20569571 (Version 1)
Quarter: 2022Q1

REPORT INFORMATION
  Report Type: Spontaneous
  Country: TR (occurrence: TR)
  Receive Date: 20220309
  Receipt Date: 20220309
  Transmission Date: 20220423
  Serious: Yes (Other)
  Sender: FDA-Public Use
  Company Number: TR-NOVOPROD-895878

PATIENT
  Sex: Male

DRUGS (1)
  1. NORDITROPIN [Suspect]
     Active Substance: SOMATROPIN
     Indication: Growth retardation
     Dosage: 27.5 ?G/KG, QD
     Route: 065

REACTIONS (3)
  - Insulin resistance [Unknown]
  - Insulin-like growth factor increased [Unknown]
  - Blood insulin increased [Unknown]
